FAERS Safety Report 25934286 (Version 1)
Quarter: 2025Q4

REPORT INFORMATION
  Report Type: Report from Study
  Country: EU (occurrence: EU)
  Receive Date: 20251017
  Receipt Date: 20251017
  Transmission Date: 20260117
  Serious: Yes (Other)
  Sender: IDORSIA PHARMACEUTICALS
  Company Number: EU-IDORSIA-012140-2025-FR

PATIENT
  Age: 55 Year
  Sex: Male
  Weight: 63 kg

DRUGS (6)
  1. QUVIVIQ [Suspect]
     Active Substance: DARIDOREXANT
     Indication: Insomnia
     Dosage: 50 MG, QD
     Route: 048
     Dates: start: 20250911, end: 20251010
  2. QUVIVIQ [Suspect]
     Active Substance: DARIDOREXANT
     Dosage: 25 MG, QD
     Route: 048
     Dates: start: 20251010
  3. PREGABALIN [Concomitant]
     Active Substance: PREGABALIN
     Indication: Restless legs syndrome
     Dosage: 350 MG, QD
     Route: 048
     Dates: start: 20210504
  4. MELATONIN [Concomitant]
     Active Substance: MELATONIN
     Indication: Insomnia
     Dosage: 0.5 MG, QD
     Route: 048
     Dates: start: 20230130
  5. MELATONIN [Concomitant]
     Active Substance: MELATONIN
     Dosage: 2 MG, QD, MELATONIN EXTENDED  RELEASE (ER)
     Route: 048
     Dates: start: 20250911
  6. MELATONIN [Concomitant]
     Active Substance: MELATONIN
     Dosage: 10 MG, QD
     Route: 048
     Dates: end: 20250911

REACTIONS (2)
  - Somnolence [Not Recovered/Not Resolved]
  - Impaired driving ability [Not Recovered/Not Resolved]

NARRATIVE: CASE EVENT DATE: 20250912
